FAERS Safety Report 7128074-8 (Version None)
Quarter: 2010Q4

REPORT INFORMATION
  Report Type: 
  Country: None (occurrence: None)
  Receive Date: 20101130
  Receipt Date: 20101019
  Transmission Date: 20110411
  Serious: No
  Sender: FDA-Public Use
  Company Number: US-ALLERGAN-1013419US

PATIENT
  Age: 60 Year
  Sex: Female

DRUGS (2)
  1. ZYMAXID [Suspect]
     Indication: EYE DISORDER
     Dosage: 1 GTT, QID
     Route: 047
     Dates: start: 20101018, end: 20101018
  2. GENTEAL                            /00445101/ [Suspect]
     Indication: DRY EYE
     Dosage: 1 GTT, PRN

REACTIONS (3)
  - EYE PAIN [None]
  - RASH [None]
  - SKIN BURNING SENSATION [None]
